FAERS Safety Report 5889078-6 (Version None)
Quarter: 2008Q3

REPORT INFORMATION
  Report Type: 
  Country: None (occurrence: None)
  Receive Date: 20080919
  Receipt Date: 20080419
  Transmission Date: 20090109
  Serious: No
  Sender: FDA-Public Use
  Company Number: PR-BAYER-200823266NA

PATIENT
  Age: 50 Year
  Sex: Male

DRUGS (1)
  1. AVELOX [Suspect]
     Indication: DRUG USE FOR UNKNOWN INDICATION
     Dosage: TOTAL DAILY DOSE: 400 MG  UNIT DOSE: 400 MG
     Route: 048
     Dates: start: 20080418, end: 20080418

REACTIONS (2)
  - HYPERSENSITIVITY [None]
  - RASH [None]
